FAERS Safety Report 4751426-8 (Version None)
Quarter: 2005Q3

REPORT INFORMATION
  Report Type: 
  Country: None (occurrence: None)
  Receive Date: 20050824
  Receipt Date: 20050816
  Transmission Date: 20060218
  Serious: Yes (Death)
  Sender: FDA-Public Use
  Company Number: 200512727FR

PATIENT
  Age: 52 Year
  Sex: Female
  Weight: 106 kg

DRUGS (5)
  1. LASIX [Suspect]
     Route: 042
     Dates: start: 20050218, end: 20050224
  2. CIFLOX [Suspect]
     Route: 042
     Dates: start: 20050222, end: 20050223
  3. ZESTRIL [Suspect]
     Dosage: DOSE UNIT: UNITS
     Route: 048
     Dates: start: 20050222, end: 20050222
  4. FORTUM [Concomitant]
     Route: 042
     Dates: start: 20050222, end: 20050301
  5. CAPTOPRIL [Concomitant]
     Route: 048
     Dates: start: 20050220, end: 20050220

REACTIONS (4)
  - DIALYSIS [None]
  - INTESTINAL OBSTRUCTION [None]
  - LUNG INFECTION PSEUDOMONAL [None]
  - RENAL FAILURE ACUTE [None]
